FAERS Safety Report 8918032 (Version 5)
Quarter: 2013Q4

REPORT INFORMATION
  Report Type: Spontaneous
  Country: US (occurrence: US)
  Receive Date: 20121120
  Receipt Date: 20131023
  Transmission Date: 20140711
  Serious: Yes (Hospitalization, Disabling, Other)
  Sender: FDA-Public Use
  Company Number: US-009507513-1211USA007926

PATIENT
  Sex: Female
  Weight: 64.49 kg

DRUGS (5)
  1. FOSAMAX [Suspect]
     Indication: OSTEOPENIA
     Dosage: 70 MG, UNK
     Route: 048
     Dates: start: 200110, end: 200604
  2. FOSAMAX PLUS D [Suspect]
     Indication: OSTEOPENIA
     Dosage: 70 GM/ 2800 IU, UNK
     Route: 048
     Dates: start: 200605, end: 200802
  3. ALENDRONATE SODIUM [Suspect]
     Indication: OSTEOPENIA
     Dosage: 70 MG, UNK
     Route: 048
     Dates: start: 200803, end: 201101
  4. TETRACYCLINE [Concomitant]
     Dosage: 250 MG, BID
     Route: 048
  5. TETRACYCLINE [Concomitant]
     Dosage: 250 MG, QD
     Route: 048

REACTIONS (25)
  - Bone graft [Unknown]
  - Osteomyelitis acute [Not Recovered/Not Resolved]
  - Osteomyelitis chronic [Not Recovered/Not Resolved]
  - Tooth abscess [Unknown]
  - Oral surgery [Recovering/Resolving]
  - Osteonecrosis of jaw [Not Recovered/Not Resolved]
  - Bone loss [Unknown]
  - Dental caries [Unknown]
  - Dental caries [Unknown]
  - Dental caries [Unknown]
  - Hypertension [Unknown]
  - Bone loss [Unknown]
  - Tooth abscess [Unknown]
  - Bone loss [Unknown]
  - Medical device complication [Unknown]
  - Bone loss [Unknown]
  - Dental fistula [Unknown]
  - Alveolar osteitis [Unknown]
  - Osteoarthritis [Unknown]
  - Cardiac murmur [Unknown]
  - Osteoporosis [Unknown]
  - Lymphadenopathy [Unknown]
  - Actinomycosis [Unknown]
  - Eosinophilia [Unknown]
  - Diarrhoea [Unknown]
